FAERS Safety Report 19924971 (Version 2)
Quarter: 2021Q4

REPORT INFORMATION
  Report Type: Spontaneous
  Country: US (occurrence: US)
  Receive Date: 20211006
  Receipt Date: 20211011
  Transmission Date: 20220303
  Serious: Yes (Hospitalization, Other)
  Sender: FDA-Public Use
  Company Number: US-PFIZER INC-202101238768

PATIENT
  Age: 70 Year
  Sex: Female
  Weight: 86.18 kg

DRUGS (10)
  1. METHOTREXATE SODIUM [Suspect]
     Active Substance: METHOTREXATE SODIUM
     Indication: Rheumatoid arthritis
     Dosage: 10 MG, WEEKLY
     Dates: start: 201902
  2. METHOTREXATE SODIUM [Suspect]
     Active Substance: METHOTREXATE SODIUM
     Dosage: 20 MG, WEEKLY
  3. METHOTREXATE SODIUM [Suspect]
     Active Substance: METHOTREXATE SODIUM
     Dosage: 20 MG, WEEKLY
     Dates: start: 202002, end: 202005
  4. METHOTREXATE SODIUM [Suspect]
     Active Substance: METHOTREXATE SODIUM
     Dosage: 15 MG
     Dates: start: 20200928
  5. METHOTREXATE SODIUM [Suspect]
     Active Substance: METHOTREXATE SODIUM
     Dosage: 20 MG, WEEKLY
     Dates: start: 202011
  6. METHOTREXATE SODIUM [Suspect]
     Active Substance: METHOTREXATE SODIUM
     Dosage: 15 MG (STARTED WITH 6 OF THE 2.5 MG)
     Dates: start: 201904
  7. METHOTREXATE SODIUM [Suspect]
     Active Substance: METHOTREXATE SODIUM
     Dosage: 20 MG, WEEKLY (2.5MG 8 TABLETS BY MOUTH ONCE A WEEK)
     Route: 048
     Dates: start: 201905
  8. XELJANZ XR [Suspect]
     Active Substance: TOFACITINIB CITRATE
     Indication: Rheumatoid arthritis
     Dosage: 11 MG
     Route: 048
     Dates: start: 20191030
  9. XELJANZ XR [Suspect]
     Active Substance: TOFACITINIB CITRATE
     Dosage: 11 MG
     Dates: start: 202002, end: 20200514
  10. XELJANZ XR [Suspect]
     Active Substance: TOFACITINIB CITRATE
     Dosage: 11 MG, 1X/DAY
     Route: 048
     Dates: start: 20201030

REACTIONS (11)
  - Spinal stenosis [Recovered/Resolved]
  - Blood pressure abnormal [Unknown]
  - Blood potassium abnormal [Unknown]
  - Basedow^s disease [Recovering/Resolving]
  - Arthritis [Not Recovered/Not Resolved]
  - Conjunctivitis [Unknown]
  - Goitre [Not Recovered/Not Resolved]
  - Herpes zoster [Recovered/Resolved]
  - Pernicious anaemia [Unknown]
  - Sinusitis [Unknown]
  - Bone pain [Not Recovered/Not Resolved]

NARRATIVE: CASE EVENT DATE: 20200101
